FAERS Safety Report 19087295 (Version 2)
Quarter: 2021Q4

REPORT INFORMATION
  Report Type: Report from Study
  Country: UG (occurrence: UG)
  Receive Date: 20210402
  Receipt Date: 20211230
  Transmission Date: 20220303
  Serious: Yes (Other)
  Sender: FDA-Public Use
  Company Number: UG-CIPLA LTD.-2021UG02476

PATIENT

DRUGS (1)
  1. LOPINAVIR\RITONAVIR [Suspect]
     Active Substance: LOPINAVIR\RITONAVIR
     Indication: HIV infection
     Dosage: 2 DOSAGE FORM, BID, 4 DAILY PELLETS (80MG/20MG BID DAILY)
     Route: 048
     Dates: start: 20170109, end: 20170407

REACTIONS (3)
  - Cough [None]
  - Pulmonary tuberculosis [Recovered/Resolved]
  - Viral upper respiratory tract infection [Recovered/Resolved]

NARRATIVE: CASE EVENT DATE: 20170203
